FAERS Safety Report 22521507 (Version 4)
Quarter: 2024Q3

REPORT INFORMATION
  Report Type: Spontaneous
  Country: US (occurrence: US)
  Receive Date: 20230605
  Receipt Date: 20240802
  Transmission Date: 20241017
  Serious: No
  Sender: PFIZER
  Company Number: US-PFIZER INC-US-GBT-013642

PATIENT
  Age: 16 Year
  Sex: Female
  Weight: 49.8 kg

DRUGS (6)
  1. OXBRYTA [Suspect]
     Active Substance: VOXELOTOR
     Indication: Sickle cell disease
     Dosage: 1500 MG, 1X/DAY [3 TABLETS PO (ORAL) ONCE DAILY]
     Route: 048
     Dates: start: 20210506
  2. OXBRYTA [Suspect]
     Active Substance: VOXELOTOR
     Dosage: 300MG, 3 TABLETS ONCE DAILY, ORALLY
     Route: 048
     Dates: start: 2021
  3. OXBRYTA [Suspect]
     Active Substance: VOXELOTOR
     Indication: Sickle cell disease
     Dosage: 1200 MG, DAILY
     Route: 048
  4. OXBRYTA [Suspect]
     Active Substance: VOXELOTOR
     Dosage: 300 MG, 4X/DAY
     Route: 048
  5. FOLIC ACID [Concomitant]
     Active Substance: FOLIC ACID
     Dosage: UNK
  6. HYDROXYUREA [Concomitant]
     Active Substance: HYDROXYUREA
     Dosage: UNK

REACTIONS (4)
  - Choking sensation [Unknown]
  - Expulsion of medication [Unknown]
  - Product dose omission issue [Unknown]
  - Off label use [Unknown]
